FAERS Safety Report 4822343-X (Version None)
Quarter: 2005Q4

REPORT INFORMATION
  Report Type: 
  Country: None (occurrence: None)
  Receive Date: 20051019
  Receipt Date: 20041221
  Transmission Date: 20060501
  Serious: No
  Sender: FDA-Public Use
  Company Number: 200410401BBE

PATIENT
  Age: 55 Year
  Sex: Male

DRUGS (5)
  1. PLASBUMIN-25 [Suspect]
     Indication: HYPOALBUMINAEMIA
     Dosage: 25 G, TOTAL DAILY, INTRAVENOUS
     Route: 042
     Dates: start: 20041127
  2. COENZYME Q10 [Concomitant]
  3. SCANTIBI [Concomitant]
  4. ETAMBUTOL [Concomitant]
  5. VALIUM [Concomitant]

REACTIONS (2)
  - CHILLS [None]
  - PYREXIA [None]
